FAERS Safety Report 24903011 (Version 1)
Quarter: 2025Q1

REPORT INFORMATION
  Report Type: Spontaneous
  Country: GB (occurrence: GB)
  Receive Date: 20250130
  Receipt Date: 20250130
  Transmission Date: 20250409
  Serious: Yes (Other)
  Sender: ADVANZ PHARMA
  Company Number: GB-MLMSERVICE-20250114-PI355606-00270-1

PATIENT

DRUGS (6)
  1. PREDNISOLONE [Suspect]
     Active Substance: PREDNISOLONE
     Indication: Myasthenia gravis crisis
     Dates: start: 2023
  2. PREDNISONE [Suspect]
     Active Substance: PREDNISONE
     Indication: Thymoma malignant
     Dates: start: 2023
  3. PYRIDOSTIGMINE [Concomitant]
     Active Substance: PYRIDOSTIGMINE
     Indication: Myasthenia gravis crisis
     Dates: start: 2023
  4. CYCLOPHOSPHAMIDE [Concomitant]
     Active Substance: CYCLOPHOSPHAMIDE
     Indication: Thymoma malignant
     Dates: start: 2023
  5. DOXORUBICIN [Concomitant]
     Active Substance: DOXORUBICIN
     Indication: Thymoma malignant
     Dates: start: 2023
  6. Immunoglobulin [Concomitant]
     Route: 042

REACTIONS (2)
  - Pseudo Cushing^s syndrome [Unknown]
  - Drug ineffective for unapproved indication [Unknown]

NARRATIVE: CASE EVENT DATE: 20230101
